FAERS Safety Report 7257174-7 (Version None)
Quarter: 2011Q1

REPORT INFORMATION
  Report Type: 
  Country: None (occurrence: None)
  Receive Date: 20110129
  Receipt Date: 20100817
  Transmission Date: 20110831
  Serious: No
  Sender: FDA-Public Use
  Company Number: US-ABBOTT-10P-163-0664678-00

PATIENT
  Age: 51 Year
  Sex: Female

DRUGS (2)
  1. METFORMIN [Concomitant]
     Indication: DIABETES MELLITUS
  2. HUMIRA [Suspect]
     Indication: CROHN'S DISEASE
     Dates: start: 20090801

REACTIONS (1)
  - RASH MACULO-PAPULAR [None]
